FAERS Safety Report 10029433 (Version 4)
Quarter: 2014Q2

REPORT INFORMATION
  Report Type: Spontaneous
  Country: IT (occurrence: IT)
  Receive Date: 20140322
  Receipt Date: 20140513
  Transmission Date: 20141212
  Serious: Yes (Life-Threatening)
  Sender: FDA-Public Use
  Company Number: PHHY2014IT029867

PATIENT
  Age: 82 Year
  Sex: Female

DRUGS (14)
  1. VOLTAREN [Suspect]
     Indication: PYREXIA
     Dosage: 5 DF, TOTAL
     Route: 030
     Dates: start: 20140221, end: 20140301
  2. FENITOINA HIKMA [Suspect]
     Indication: SUBARACHNOID HAEMORRHAGE
     Dosage: 300 MG, DAY
     Route: 042
     Dates: start: 20140213, end: 20140227
  3. LEVOFLOXACINA KABI [Suspect]
     Indication: SEPSIS
     Dosage: 750 MG, DAY
     Route: 042
     Dates: start: 20140215, end: 20140224
  4. PARACETAMOLO [Suspect]
     Indication: PYREXIA
     Dosage: 4 DF, TOTAL
     Route: 042
     Dates: start: 20140219, end: 20140306
  5. FIDATO [Suspect]
     Indication: SEPSIS
     Dosage: 2 G, DAY
     Route: 042
     Dates: start: 20140221, end: 20140304
  6. VANCOMICINA HIKMA [Suspect]
     Indication: SEPSIS
     Dosage: 1 DF, DAY
     Route: 042
     Dates: start: 20140224, end: 20140306
  7. KEPPRA [Suspect]
     Indication: SUBARACHNOID HAEMORRHAGE
     Dosage: 500 MG, DAY
     Route: 042
     Dates: start: 20140228, end: 20140308
  8. ESOMEPRAZOLE [Concomitant]
     Dosage: UNK UKN, UNK
  9. PROPOFOL [Concomitant]
  10. FUROSEMIDE [Concomitant]
  11. CATAPRESSAN TTS [Concomitant]
  12. ALBUMINE BAXTER [Concomitant]
  13. NIMBEX [Concomitant]
  14. ENAPREN [Concomitant]
     Dosage: 10 MG, UNK

REACTIONS (3)
  - Drug reaction with eosinophilia and systemic symptoms [Not Recovered/Not Resolved]
  - Exfoliative rash [Recovering/Resolving]
  - Erythema [Recovering/Resolving]
